FAERS Safety Report 10573081 (Version 1)
Quarter: 2014Q4

REPORT INFORMATION
  Report Type: Spontaneous
  Country: US (occurrence: None)
  Receive Date: 20141106
  Receipt Date: 20141106
  Transmission Date: 20150529
  Serious: Yes (Other)
  Sender: FDA-Public Use
  Company Number: COL_18387_2014

PATIENT
  Age: 64 Year
  Sex: Female

DRUGS (1)
  1. COLGATE OPTIC WHITE SPARKLING MINT FLAVOR [Suspect]
     Active Substance: SODIUM MONOFLUOROPHOSPHATE
     Indication: PRODUCT USED FOR UNKNOWN INDICATION
     Dosage: 2 PEASIZES
     Route: 048
     Dates: start: 20140831, end: 20140831

REACTIONS (3)
  - Swollen tongue [None]
  - Lip swelling [None]
  - Hypersensitivity [None]

NARRATIVE: CASE EVENT DATE: 20140831
